FAERS Safety Report 5121261-X (Version None)
Quarter: 2006Q4

REPORT INFORMATION
  Report Type: 
  Country: None (occurrence: None)
  Receive Date: 20061005
  Receipt Date: 20060919
  Transmission Date: 20070319
  Serious: Yes (Hospitalization)
  Sender: FDA-Public Use
  Company Number: AT-BOEHRINGER INGELHEIM GMBH, GERMANY-2006-BE-00069BE

PATIENT
  Age: 72 Year
  Sex: Female

DRUGS (6)
  1. SIFROL - 0,18 MG - TABLETTEN [Suspect]
     Indication: PARKINSON'S DISEASE
  2. MADOPAR [Suspect]
     Indication: PARKINSON'S DISEASE
     Dosage: 100/25 MG
  3. MADOPAR [Suspect]
     Dosage: 50/12,5 MG
  4. TRAMADOL HCL [Suspect]
     Indication: PARKINSON'S DISEASE
  5. DICLOFENAC [Suspect]
     Indication: PARKINSON'S DISEASE
     Dosage: AND IF REQUIRED
  6. MIRTAZAPINE [Suspect]
     Indication: PARKINSON'S DISEASE
     Dosage: IN THE EVENING

REACTIONS (6)
  - BACK PAIN [None]
  - BONE PAIN [None]
  - CHEST DISCOMFORT [None]
  - HYPERKINESIA [None]
  - KYPHOSIS [None]
  - MOTOR DYSFUNCTION [None]
